FAERS Safety Report 4694022-3 (Version None)
Quarter: 2005Q2

REPORT INFORMATION
  Report Type: 
  Country: None (occurrence: None)
  Receive Date: 20050616
  Receipt Date: 20050604
  Transmission Date: 20051028
  Serious: Yes (Other)
  Sender: FDA-Public Use
  Company Number: 2005083931

PATIENT
  Sex: Female
  Weight: 99.7913 kg

DRUGS (1)
  1. BENADRYL [Suspect]
     Indication: INSOMNIA
     Dosage: 2 KAPSEALS ONCE, ORAL
     Route: 048
     Dates: start: 19890101, end: 19890101

REACTIONS (8)
  - ANAPHYLACTIC SHOCK [None]
  - APHASIA [None]
  - BLOOD PRESSURE IMMEASURABLE [None]
  - FALL [None]
  - FEELING COLD [None]
  - HYPOAESTHESIA [None]
  - PERIPHERAL COLDNESS [None]
  - PULSE ABSENT [None]
